FAERS Safety Report 25972644 (Version 1)
Quarter: 2025Q4

REPORT INFORMATION
  Report Type: Spontaneous
  Country: US (occurrence: US)
  Receive Date: 20251029
  Receipt Date: 20251029
  Transmission Date: 20260118
  Serious: No
  Sender: BIOGEN
  Company Number: US-BIOGEN-2087908

PATIENT
  Sex: Female

DRUGS (1)
  1. VUMERITY [Suspect]
     Active Substance: DIROXIMEL FUMARATE
     Indication: Multiple sclerosis

REACTIONS (4)
  - Multiple sclerosis [Recovering/Resolving]
  - Fall [Recovered/Resolved]
  - Hypertension [Recovering/Resolving]
  - Ankle fracture [Recovering/Resolving]

NARRATIVE: CASE EVENT DATE: 20250101
